FAERS Safety Report 6275240-X (Version None)
Quarter: 2009Q3

REPORT INFORMATION
  Report Type: 
  Country: None (occurrence: None)
  Receive Date: 20090721
  Receipt Date: 20090717
  Transmission Date: 20100115
  Serious: Yes (Death)
  Sender: FDA-Public Use
  Company Number: US-B.I. PHARMACEUTICALS,INC./RIDGEFIELD-2009-BP-08511BP

PATIENT
  Age: 49 Year
  Sex: Male

DRUGS (1)
  1. MOBIC [Suspect]

REACTIONS (4)
  - DEATH [None]
  - LIVER INJURY [None]
  - RENAL DISORDER [None]
  - SKIN DISCOLOURATION [None]
